FAERS Safety Report 9445054 (Version 1)
Quarter: 2013Q3

REPORT INFORMATION
  Report Type: Spontaneous
  Country: US (occurrence: US)
  Receive Date: 20130807
  Receipt Date: 20130807
  Transmission Date: 20140515
  Serious: Yes (Death, Other)
  Sender: FDA-Public Use
  Company Number: US-PURDUE-USA-2013-0105027

PATIENT
  Age: 78 Year
  Sex: Male
  Weight: 106 kg

DRUGS (7)
  1. OXYCONTIN (NDA 22-272) [Suspect]
     Indication: PAIN
     Dosage: 140 MG, TID
     Route: 065
  2. XTANDI [Suspect]
     Indication: PROSTATE CANCER METASTATIC
     Dosage: 160 MG, QD PRN
     Route: 048
     Dates: start: 20121211, end: 20121212
  3. XTANDI [Suspect]
     Dosage: 40 UNK, QD PRN
     Route: 048
  4. XTANDI [Suspect]
     Dosage: 80 MG, QD PRN
     Route: 048
  5. XTANDI [Suspect]
     Dosage: 120 MG, QD PRN
     Route: 048
  6. XTANDI [Suspect]
     Dosage: UNK MG, UNK
     Route: 048
     Dates: end: 201302
  7. PREDNISONE [Concomitant]
     Indication: PRODUCT USED FOR UNKNOWN INDICATION
     Dosage: 5 MG, UNK
     Route: 065
     Dates: start: 20111014

REACTIONS (6)
  - Malignant neoplasm progression [Fatal]
  - Pneumonia aspiration [Fatal]
  - Somnolence [Unknown]
  - Constipation [Unknown]
  - Fatigue [Unknown]
  - Asthenia [Unknown]
